FAERS Safety Report 10440569 (Version 1)
Quarter: 2014Q3

REPORT INFORMATION
  Report Type: Spontaneous
  Country: US (occurrence: None)
  Receive Date: 20140908
  Receipt Date: 20140908
  Transmission Date: 20150326
  Serious: Yes (Hospitalization)
  Sender: FDA-Public Use
  Company Number: None

PATIENT
  Age: 45 Year
  Sex: Female
  Weight: 82.5 kg

DRUGS (1)
  1. ZINECARD [Suspect]
     Active Substance: DEXRAZOXANE HYDROCHLORIDE
     Indication: EXTRAVASATION
     Dosage: 1880 MG, DAILY FOR 3 DAYS, INTRAVENOUS
     Route: 042
     Dates: start: 20140905, end: 20140905

REACTIONS (8)
  - Respiratory arrest [None]
  - Unresponsive to stimuli [None]
  - Muscle tightness [None]
  - Throat tightness [None]
  - Confusional state [None]
  - Swelling face [None]
  - Sinus bradycardia [None]
  - Local swelling [None]

NARRATIVE: CASE EVENT DATE: 20140905
